FAERS Safety Report 18503537 (Version 1)
Quarter: 2020Q4

REPORT INFORMATION
  Report Type: Spontaneous
  Country: PL (occurrence: PL)
  Receive Date: 20201113
  Receipt Date: 20201113
  Transmission Date: 20210114
  Serious: Yes (Death, Hospitalization)
  Sender: FDA-Public Use
  Company Number: PL-JNJFOC-20201113755

PATIENT
  Age: 76 Year
  Sex: Male
  Weight: 108 kg

DRUGS (55)
  1. ZYTIGA [Suspect]
     Active Substance: ABIRATERONE ACETATE
     Route: 048
     Dates: start: 20200212, end: 20200310
  2. NIRAPARIB [Suspect]
     Active Substance: NIRAPARIB
     Route: 065
     Dates: start: 20191023, end: 20191119
  3. NIRAPARIB [Suspect]
     Active Substance: NIRAPARIB
     Route: 065
     Dates: start: 20200311, end: 20200407
  4. NIRAPARIB [Suspect]
     Active Substance: NIRAPARIB
     Route: 065
     Dates: start: 20200408, end: 20200505
  5. PREDNISONE. [Suspect]
     Active Substance: PREDNISONE
     Indication: PROSTATE CANCER METASTATIC
     Route: 065
     Dates: start: 20190829, end: 20190924
  6. PREDNISONE. [Suspect]
     Active Substance: PREDNISONE
     Route: 065
     Dates: start: 20191120, end: 20191217
  7. AUGMENTIN [Concomitant]
     Active Substance: AMOXICILLIN\CLAVULANATE POTASSIUM
     Indication: URINARY TRACT INFECTION
     Route: 065
     Dates: start: 20190917, end: 20190924
  8. HYDROCHLOROTHIAZIDE. [Concomitant]
     Active Substance: HYDROCHLOROTHIAZIDE
     Indication: HYPERTENSION
     Route: 048
     Dates: start: 2014
  9. OMNIC OCAS [Concomitant]
     Active Substance: TAMSULOSIN HYDROCHLORIDE
     Indication: URINARY RETENTION
     Route: 048
     Dates: start: 2019
  10. INSULIN HUMAN [Concomitant]
     Active Substance: INSULIN HUMAN
     Indication: TYPE 2 DIABETES MELLITUS
     Route: 058
     Dates: start: 201909, end: 201909
  11. ZYTIGA [Suspect]
     Active Substance: ABIRATERONE ACETATE
     Route: 048
     Dates: start: 20191218, end: 20200114
  12. ZYTIGA [Suspect]
     Active Substance: ABIRATERONE ACETATE
     Route: 048
     Dates: start: 20200408, end: 20200505
  13. NIRAPARIB [Suspect]
     Active Substance: NIRAPARIB
     Route: 065
     Dates: start: 20190925, end: 20191022
  14. PREDNISONE. [Suspect]
     Active Substance: PREDNISONE
     Route: 065
     Dates: start: 20200408, end: 20200505
  15. PREDNISONE. [Suspect]
     Active Substance: PREDNISONE
     Route: 065
     Dates: start: 20200603
  16. CLEXANE [Concomitant]
     Active Substance: ENOXAPARIN SODIUM
     Indication: THROMBOSIS PROPHYLAXIS
     Route: 065
     Dates: start: 20190917, end: 20190924
  17. ELECTROLYTE                        /06009701/ [Concomitant]
     Indication: GASTRITIS
     Route: 042
     Dates: start: 20191002, end: 20191004
  18. MAGNESIUM                          /00123201/ [Concomitant]
     Active Substance: MAGNESIUM HYDROXIDE
     Indication: URINARY TRACT INFECTION
     Route: 048
     Dates: start: 201909
  19. ZYTIGA [Suspect]
     Active Substance: ABIRATERONE ACETATE
     Indication: PROSTATE CANCER METASTATIC
     Route: 048
     Dates: start: 20190829, end: 20190924
  20. ZYTIGA [Suspect]
     Active Substance: ABIRATERONE ACETATE
     Route: 048
     Dates: start: 20200311, end: 20200407
  21. NIRAPARIB [Suspect]
     Active Substance: NIRAPARIB
     Indication: PROSTATE CANCER METASTATIC
     Route: 065
     Dates: start: 20190829, end: 20190924
  22. PREDNISONE. [Suspect]
     Active Substance: PREDNISONE
     Route: 065
     Dates: start: 20200311, end: 20200407
  23. TEZEO HCT [Concomitant]
     Indication: HYPERTENSION
     Route: 065
     Dates: start: 20190830, end: 20190902
  24. CONTROLOC [Concomitant]
     Active Substance: PANTOPRAZOLE SODIUM
     Indication: GASTRITIS PROPHYLAXIS
     Route: 048
     Dates: start: 20191008
  25. ZYTIGA [Suspect]
     Active Substance: ABIRATERONE ACETATE
     Route: 048
     Dates: start: 20191023, end: 20191119
  26. NIRAPARIB [Suspect]
     Active Substance: NIRAPARIB
     Route: 065
     Dates: start: 20200115, end: 20200211
  27. PREDNISONE. [Suspect]
     Active Substance: PREDNISONE
     Route: 065
     Dates: start: 20191218, end: 20200114
  28. PREDNISONE. [Suspect]
     Active Substance: PREDNISONE
     Route: 065
     Dates: start: 20200212, end: 20200310
  29. PREDNISONE. [Suspect]
     Active Substance: PREDNISONE
     Route: 065
     Dates: start: 20200506, end: 20200602
  30. DOXYCYCLINE. [Suspect]
     Active Substance: DOXYCYCLINE
     Indication: DIARRHOEA
     Route: 065
  31. ELECTROLYTE                        /06009701/ [Concomitant]
     Indication: URINARY TRACT INFECTION
     Route: 065
     Dates: start: 20190917, end: 20190924
  32. CONTROLOC [Concomitant]
     Active Substance: PANTOPRAZOLE SODIUM
     Indication: GASTRITIS
     Route: 048
     Dates: start: 20191002, end: 20191007
  33. ZYTIGA [Suspect]
     Active Substance: ABIRATERONE ACETATE
     Route: 048
     Dates: start: 20190925, end: 20191022
  34. ZYTIGA [Suspect]
     Active Substance: ABIRATERONE ACETATE
     Route: 048
     Dates: start: 20200115, end: 20200211
  35. ZYTIGA [Suspect]
     Active Substance: ABIRATERONE ACETATE
     Route: 048
     Dates: start: 20200603
  36. NIRAPARIB [Suspect]
     Active Substance: NIRAPARIB
     Route: 065
     Dates: start: 20200212, end: 20200310
  37. NIRAPARIB [Suspect]
     Active Substance: NIRAPARIB
     Route: 065
     Dates: start: 20200506, end: 20200602
  38. METFORMAX [Concomitant]
     Active Substance: METFORMIN HYDROCHLORIDE
     Indication: TYPE 2 DIABETES MELLITUS
     Route: 048
     Dates: start: 2013
  39. ESPUMISAN                          /06269601/ [Concomitant]
     Indication: NAUSEA
     Route: 048
     Dates: start: 20190911
  40. ZYTIGA [Suspect]
     Active Substance: ABIRATERONE ACETATE
     Route: 048
     Dates: start: 20191120, end: 20191217
  41. NIRAPARIB [Suspect]
     Active Substance: NIRAPARIB
     Route: 065
     Dates: start: 20191120, end: 20191217
  42. PREDNISONE. [Suspect]
     Active Substance: PREDNISONE
     Route: 065
     Dates: start: 20200115, end: 20200211
  43. ELIGARD [Concomitant]
     Active Substance: LEUPROLIDE ACETATE
     Indication: PROSTATE CANCER METASTATIC
     Route: 058
     Dates: start: 20160128
  44. ACARD [Concomitant]
     Active Substance: ASPIRIN
     Indication: CARDIOVASCULAR EVENT PROPHYLAXIS
     Route: 048
     Dates: start: 20190830
  45. ACTRAPID [Concomitant]
     Active Substance: INSULIN HUMAN
     Indication: TYPE 2 DIABETES MELLITUS
     Route: 058
     Dates: start: 201909, end: 201909
  46. DORETA [Concomitant]
     Active Substance: ACETAMINOPHEN\TRAMADOL HYDROCHLORIDE
     Indication: URINARY TRACT INFECTION
     Route: 048
     Dates: start: 201909, end: 201909
  47. NEOPARIN [Concomitant]
     Active Substance: ENOXAPARIN SODIUM
     Indication: PULMONARY EMBOLISM
     Route: 058
     Dates: start: 20200729
  48. ZYTIGA [Suspect]
     Active Substance: ABIRATERONE ACETATE
     Route: 048
     Dates: start: 20200506, end: 20200602
  49. NIRAPARIB [Suspect]
     Active Substance: NIRAPARIB
     Route: 065
     Dates: start: 20191218, end: 20200114
  50. NIRAPARIB [Suspect]
     Active Substance: NIRAPARIB
     Route: 065
     Dates: start: 20200603
  51. PREDNISONE. [Suspect]
     Active Substance: PREDNISONE
     Route: 065
     Dates: start: 20190925, end: 20191022
  52. ZOMIKOS [Concomitant]
     Indication: PROPHYLAXIS
     Route: 042
     Dates: start: 20180928
  53. ONDANSETRON [Concomitant]
     Active Substance: ONDANSETRON
     Indication: NAUSEA
     Route: 048
     Dates: start: 20190928, end: 20190930
  54. PREDNISONE. [Suspect]
     Active Substance: PREDNISONE
     Route: 065
     Dates: start: 20191023, end: 20191119
  55. TELMISARTAN. [Concomitant]
     Active Substance: TELMISARTAN
     Indication: HYPERTENSION
     Route: 048
     Dates: start: 2014

REACTIONS (6)
  - Gastrooesophageal reflux disease [Recovered/Resolved]
  - Prostate cancer metastatic [Fatal]
  - Asthenia [Recovered/Resolved]
  - Pyrexia [Recovered/Resolved]
  - Decreased appetite [Recovered/Resolved]
  - Diarrhoea [Recovered/Resolved]

NARRATIVE: CASE EVENT DATE: 20200925
